FAERS Safety Report 4698244-7 (Version None)
Quarter: 2005Q2

REPORT INFORMATION
  Report Type: 
  Country: None (occurrence: None)
  Receive Date: 20050621
  Receipt Date: 20050606
  Transmission Date: 20051028
  Serious: Yes (Hospitalization)
  Sender: FDA-Public Use
  Company Number: USA050699803

PATIENT
  Age: 82 Year
  Sex: Female

DRUGS (18)
  1. CYMBALTA [Suspect]
     Indication: DEPRESSION
     Dosage: 60 MG DAY
     Dates: start: 20050401
  2. SYNTHROID [Concomitant]
  3. NEXIUM [Concomitant]
  4. TOPROL-XL [Concomitant]
  5. COZAAR [Concomitant]
  6. ALDACTONE [Concomitant]
  7. DEMADEX [Concomitant]
  8. FOLIC ACID [Concomitant]
  9. EASPRIN (ACETYLSALICYLIC ACID) [Concomitant]
  10. MULTIVITAMINS NOS (MULTIVITAMINS NOS) [Concomitant]
  11. PREMARIN [Concomitant]
  12. PLAVIX [Concomitant]
  13. ARICEPT [Concomitant]
  14. LIPITOR [Concomitant]
  15. NORVASC [Concomitant]
  16. NEURONTIN [Concomitant]
  17. ADVAIR [Concomitant]
  18. SPIRIVA [Concomitant]

REACTIONS (8)
  - ABNORMAL BEHAVIOUR [None]
  - ABNORMAL DREAMS [None]
  - CARDIAC FAILURE CONGESTIVE [None]
  - DEMENTIA ALZHEIMER'S TYPE [None]
  - DIARRHOEA [None]
  - SLEEP TALKING [None]
  - SOMNOLENCE [None]
  - VOMITING [None]
